FAERS Safety Report 8831280 (Version 4)
Quarter: 2012Q4

REPORT INFORMATION
  Report Type: 
  Country: SI (occurrence: SI)
  Receive Date: 20121008
  Receipt Date: 20121101
  Transmission Date: 20130627
  Serious: Yes (Other)
  Sender: FDA-Public Use
  Company Number: SI-PFIZER INC-2012232857

PATIENT
  Age: 31 Year
  Sex: Male

DRUGS (7)
  1. TOVIAZ [Suspect]
     Indication: NEUROGENIC BLADDER
     Dosage: 12 mg, daily
     Route: 048
     Dates: start: 20100104
  2. LYRICA [Concomitant]
     Dosage: 150 mg, UNK
     Route: 048
     Dates: start: 20090915
  3. APAURIN [Concomitant]
     Dosage: 2 mg, 4x per day
     Route: 048
  4. B COMPLEX [Concomitant]
     Dosage: UNK
  5. SANVAL [Concomitant]
     Dosage: UNK, every evening
     Route: 048
  6. TRAMAL [Concomitant]
     Indication: CRAMPS
     Dosage: UNK, as needed
     Route: 048
  7. DUROLAX [Concomitant]
     Indication: LAXATIVE SUPPORTIVE CARE
     Dosage: UNK

REACTIONS (5)
  - Atrioventricular block [Unknown]
  - Constipation [Not Recovered/Not Resolved]
  - Rash [Not Recovered/Not Resolved]
  - Skin exfoliation [Not Recovered/Not Resolved]
  - Rash pruritic [Not Recovered/Not Resolved]
